FAERS Safety Report 7048512-9 (Version None)
Quarter: 2010Q4

REPORT INFORMATION
  Report Type: 
  Country: None (occurrence: None)
  Receive Date: 20101007
  Receipt Date: 20100921
  Transmission Date: 20110411
  Serious: Yes (Other)
  Sender: FDA-Public Use
  Company Number: B0677094A

PATIENT
  Age: 38 Year
  Sex: Male

DRUGS (2)
  1. LAMIVUDINE-HIV (FORMULATION UNKNOWN) (LAMIVUDINE-HIV) (GENERIC) [Suspect]
     Indication: ACQUIRED IMMUNODEFICIENCY SYNDROME
     Dates: start: 20090101
  2. RALTEGRAVIR (FORMULATION UNKNOWN) (RALTEGRAVIR) [Suspect]
     Dates: start: 20090101

REACTIONS (4)
  - ATELECTASIS [None]
  - HILAR LYMPHADENOPATHY [None]
  - IMMUNE RECONSTITUTION SYNDROME [None]
  - MYCOBACTERIAL INFECTION [None]
